FAERS Safety Report 5503202-6 (Version None)
Quarter: 2007Q4

REPORT INFORMATION
  Report Type: 
  Country: None (occurrence: None)
  Receive Date: 20071031
  Receipt Date: 20071025
  Transmission Date: 20080405
  Serious: Yes (Other)
  Sender: FDA-Public Use
  Company Number: JP-ASTRAZENECA-2007AP03578

PATIENT
  Age: 84 Year
  Sex: Female

DRUGS (3)
  1. ARIMIDEX [Suspect]
     Indication: BREAST CANCER
     Route: 048
     Dates: start: 20060101
  2. BONALON [Suspect]
     Indication: OSTEOPOROSIS
     Route: 048
     Dates: start: 20060101
  3. ADOFEED [Concomitant]

REACTIONS (1)
  - PLATELET COUNT DECREASED [None]
